FAERS Safety Report 17693911 (Version 1)
Quarter: 2020Q2

REPORT INFORMATION
  Report Type: Spontaneous
  Country: US (occurrence: US)
  Receive Date: 20200422
  Receipt Date: 20200422
  Transmission Date: 20200714
  Serious: Yes (Hospitalization)
  Sender: FDA-Public Use
  Company Number: US-JNJFOC-20200421195

PATIENT
  Age: 45 Year
  Sex: Female
  Weight: 59.02 kg

DRUGS (1)
  1. INVOKAMET [Suspect]
     Active Substance: CANAGLIFLOZIN\METFORMIN HYDROCHLORIDE
     Indication: TYPE 2 DIABETES MELLITUS
     Dosage: VARYING DOSES OF 150-500 MG AND 150-1000 MG
     Route: 048

REACTIONS (6)
  - Diabetic foot infection [Unknown]
  - Osteomyelitis [Unknown]
  - Gangrene [Unknown]
  - Cellulitis [Unknown]
  - Foot amputation [Unknown]
  - Sepsis [Recovered/Resolved]

NARRATIVE: CASE EVENT DATE: 201704
